FAERS Safety Report 5497866-3 (Version None)
Quarter: 2007Q4

REPORT INFORMATION
  Report Type: 
  Country: None (occurrence: None)
  Receive Date: 20071025
  Receipt Date: 20071017
  Transmission Date: 20080405
  Serious: Yes (Life-Threatening)
  Sender: FDA-Public Use
  Company Number: US-ROCHE-525757

PATIENT

DRUGS (1)
  1. CAPECITABINE [Suspect]
     Indication: GASTROINTESTINAL CARCINOMA
     Route: 048

REACTIONS (1)
  - DRUG TOXICITY [None]
